FAERS Safety Report 14478593 (Version 3)
Quarter: 2018Q2

REPORT INFORMATION
  Report Type: Report from Study
  Country: CN (occurrence: CN)
  Receive Date: 20180202
  Receipt Date: 20180503
  Transmission Date: 20180711
  Serious: Yes (Hospitalization)
  Sender: FDA-Public Use
  Company Number: CN-ASTRAZENECA-2017SF09388

PATIENT
  Age: 26874 Day
  Sex: Female

DRUGS (10)
  1. AMLODIPINE [Concomitant]
     Active Substance: AMLODIPINE BESYLATE
     Indication: HYPERTENSION
     Route: 048
     Dates: start: 2012
  2. ALPRAZOLAM. [Concomitant]
     Active Substance: ALPRAZOLAM
     Indication: SLEEP DISORDER
     Dosage: 2 GRAIN QD
     Route: 048
     Dates: start: 2007, end: 20170904
  3. SODIUM BICARBONATE. [Concomitant]
     Active Substance: SODIUM BICARBONATE
     Indication: DYSGEUSIA
     Dosage: 3 UNIT TIMES, Q4H
     Route: 065
     Dates: start: 20170810, end: 20170831
  4. ALOE VERA [Concomitant]
     Active Substance: ALOE VERA LEAF
     Indication: CONSTIPATION
     Dosage: 2 GRAIN QD
     Route: 048
     Dates: start: 2007, end: 20170910
  5. FOLIC ACID. [Concomitant]
     Active Substance: FOLIC ACID
     Indication: NERVOUS SYSTEM DISORDER
     Route: 048
     Dates: start: 20170810, end: 20170901
  6. LOSARTAN POTASSIUM/HYDROCHLOROTHIAZIDE [Concomitant]
     Active Substance: HYDROCHLOROTHIAZIDE\LOSARTAN POTASSIUM
     Indication: HYPERTENSION
     Route: 048
     Dates: start: 2012
  7. EPANOVA [Suspect]
     Active Substance: OMEGA-3-CARBOXYLIC ACIDS
     Indication: HYPERTRIGLYCERIDAEMIA
     Route: 048
     Dates: start: 20170421
  8. ASPIRIN. [Concomitant]
     Active Substance: ASPIRIN
     Indication: THROMBOSIS PROPHYLAXIS
     Route: 048
     Dates: start: 2006
  9. KANGFUXINYE [Concomitant]
     Indication: DYSGEUSIA
     Dosage: 3 UNIT TIMES, TID
     Route: 065
     Dates: start: 20170810, end: 20170901
  10. SIMVASTATIN. [Concomitant]
     Active Substance: SIMVASTATIN
     Indication: HYPERLIPIDAEMIA
     Route: 048
     Dates: start: 2012

REACTIONS (2)
  - Cerebrovascular insufficiency [Recovered/Resolved]
  - Pickwickian syndrome [Recovered/Resolved]

NARRATIVE: CASE EVENT DATE: 20170901
